FAERS Safety Report 25380236 (Version 1)
Quarter: 2025Q2

REPORT INFORMATION
  Report Type: Spontaneous
  Country: US (occurrence: US)
  Receive Date: 20250530
  Receipt Date: 20250530
  Transmission Date: 20250716
  Serious: Yes (Life-Threatening, Hospitalization, Other)
  Sender: AMGEN
  Company Number: US-AMGEN-USASP2025101899

PATIENT
  Age: 70 Year
  Sex: Female

DRUGS (2)
  1. PEGLOTICASE [Suspect]
     Active Substance: PEGLOTICASE
     Indication: Gout
     Route: 065
  2. MYCOPHENOLATE MOFETIL [Suspect]
     Active Substance: MYCOPHENOLATE MOFETIL
     Indication: Gout
     Route: 065

REACTIONS (4)
  - Diabetic ketoacidosis [Recovering/Resolving]
  - Disseminated varicella zoster virus infection [Unknown]
  - Sepsis [Unknown]
  - Acute kidney injury [Unknown]
